FAERS Safety Report 9391550 (Version 1)
Quarter: 2013Q3

REPORT INFORMATION
  Report Type: Spontaneous
  Country: CO (occurrence: CO)
  Receive Date: 20130709
  Receipt Date: 20130709
  Transmission Date: 20140515
  Serious: Yes (Other)
  Sender: FDA-Public Use
  Company Number: CO-JNJFOC-20130618813

PATIENT
  Age: 11 Year
  Sex: Male
  Weight: 52 kg

DRUGS (4)
  1. RISPERDAL QUICKLETS [Suspect]
     Indication: IMPULSE-CONTROL DISORDER
     Route: 048
     Dates: start: 2008
  2. RISPERDAL QUICKLETS [Suspect]
     Indication: AUTISM
     Route: 048
     Dates: start: 2008
  3. CONCERTA [Concomitant]
     Route: 065
  4. QUETIAPINE [Concomitant]
     Route: 065

REACTIONS (7)
  - Aggression [Unknown]
  - Mood swings [Unknown]
  - Abnormal behaviour [Unknown]
  - Therapy cessation [Unknown]
  - Abnormal behaviour [Unknown]
  - Decreased appetite [Recovering/Resolving]
  - Insomnia [Unknown]
